FAERS Safety Report 15401444 (Version 1)
Quarter: 2018Q3

REPORT INFORMATION
  Report Type: Spontaneous
  Country: US (occurrence: US)
  Receive Date: 20180919
  Receipt Date: 20180919
  Transmission Date: 20181010
  Serious: No
  Sender: FDA-Public Use
  Company Number: US-ASTRAZENECA-2018SF06890

PATIENT
  Age: 54 Year
  Sex: Female

DRUGS (8)
  1. IMFINZI [Suspect]
     Active Substance: DURVALUMAB
     Indication: LUNG ADENOCARCINOMA
     Dosage: 500 MG WAS ADMINISTERED
     Route: 042
     Dates: start: 20180706
  2. IMFINZI [Suspect]
     Active Substance: DURVALUMAB
     Indication: LUNG ADENOCARCINOMA
     Dosage: 500 MG WAS ADMINISTERED
     Route: 042
     Dates: start: 20180620
  3. IMFINZI [Suspect]
     Active Substance: DURVALUMAB
     Indication: LUNG ADENOCARCINOMA
     Dosage: 500 MG WAS ADMINISTERED
     Route: 042
     Dates: start: 20180720
  4. CLONIDINE. [Concomitant]
     Active Substance: CLONIDINE
     Indication: BLOOD PRESSURE INCREASED
  5. IMFINZI [Suspect]
     Active Substance: DURVALUMAB
     Indication: LUNG ADENOCARCINOMA
     Dosage: 10 MG/KG; EVERY TWO WEEKS; 500 MG WAS ADMINISTERED
     Route: 042
     Dates: start: 20180525
  6. IMFINZI [Suspect]
     Active Substance: DURVALUMAB
     Indication: LUNG ADENOCARCINOMA
     Dosage: 500 MG WAS ADMINISTERED
     Route: 042
     Dates: start: 20180608
  7. IMFINZI [Suspect]
     Active Substance: DURVALUMAB
     Indication: LUNG ADENOCARCINOMA
     Dosage: 545 MG
     Route: 042
     Dates: start: 20180817
  8. IMFINZI [Suspect]
     Active Substance: DURVALUMAB
     Indication: LUNG ADENOCARCINOMA
     Dosage: 545 MG
     Route: 042
     Dates: start: 20180803

REACTIONS (5)
  - Hypertension [Unknown]
  - Off label use [Unknown]
  - Weight increased [Unknown]
  - Blood pressure fluctuation [Recovered/Resolved]
  - Incorrect drug administration duration [Unknown]

NARRATIVE: CASE EVENT DATE: 20180817
